FAERS Safety Report 10854634 (Version 1)
Quarter: 2015Q1

REPORT INFORMATION
  Report Type: Spontaneous
  Country: IE (occurrence: IE)
  Receive Date: 20150223
  Receipt Date: 20150223
  Transmission Date: 20150721
  Serious: Yes (Hospitalization)
  Sender: FDA-Public Use
  Company Number: IE-EMD SERONO-7116513

PATIENT
  Age: 16 Year
  Sex: Male

DRUGS (1)
  1. SAIZEN [Suspect]
     Active Substance: SOMATROPIN
     Indication: GROWTH HORMONE DEFICIENCY
     Route: 058
     Dates: start: 20100505, end: 20150212

REACTIONS (5)
  - Staphylococcal infection [Unknown]
  - Seizure [Unknown]
  - Lower respiratory tract infection [Unknown]
  - Loss of consciousness [Unknown]
  - Epistaxis [Unknown]

NARRATIVE: CASE EVENT DATE: 20120228
